FAERS Safety Report 5639855-1 (Version None)
Quarter: 2008Q1

REPORT INFORMATION
  Report Type: 
  Country: None (occurrence: None)
  Receive Date: 20080226
  Receipt Date: 20080226
  Transmission Date: 20080703
  Serious: Yes (Hospitalization)
  Sender: FDA-Public Use
  Company Number: None

PATIENT
  Age: 84 Year
  Sex: Male
  Weight: 97.1 kg

DRUGS (1)
  1. TERBINAFINE   UNKNOWN   UNKNOWN [Suspect]
     Indication: ONYCHOMYCOSIS
     Dosage: PO
     Route: 048
     Dates: start: 20080201, end: 20080218

REACTIONS (5)
  - CHILLS [None]
  - NAUSEA [None]
  - PYREXIA [None]
  - SINUSITIS [None]
  - VOMITING [None]
